FAERS Safety Report 8020080-4 (Version None)
Quarter: 2012Q1

REPORT INFORMATION
  Report Type: 
  Country: None (occurrence: None)
  Receive Date: 20120103
  Receipt Date: 20111226
  Transmission Date: 20120608
  Serious: Yes (Hospitalization)
  Sender: FDA-Public Use
  Company Number: US-TEVA-315354USA

PATIENT
  Age: 90 Year
  Sex: Male

DRUGS (4)
  1. VANCOMYCIN [Concomitant]
  2. CEFTRIAXONE [Suspect]
     Indication: ARTHRITIS BACTERIAL
     Dosage: 2 GRAM;
     Route: 042
  3. PREDNISONE TAB [Concomitant]
  4. CEFTRIAXONE [Suspect]
     Indication: GOUT

REACTIONS (7)
  - HEPATIC FAILURE [None]
  - HEPATIC ENCEPHALOPATHY [None]
  - ASTERIXIS [None]
  - LETHARGY [None]
  - CONFUSIONAL STATE [None]
  - SOMNOLENCE [None]
  - AUTOIMMUNE HEPATITIS [None]
